FAERS Safety Report 7708026-7 (Version None)
Quarter: 2011Q3

REPORT INFORMATION
  Report Type: 
  Country: None (occurrence: None)
  Receive Date: 20110824
  Receipt Date: 20110817
  Transmission Date: 20111222
  Serious: Yes (Disabling, Other)
  Sender: FDA-Public Use
  Company Number: DE-BAYER-2011-063782

PATIENT
  Age: 95 Year
  Sex: Female
  Weight: 60 kg

DRUGS (2)
  1. AVELOX [Suspect]
     Indication: PNEUMONIA
  2. AVELOX [Suspect]
     Indication: SINUSITIS
     Dosage: 400 MG, UNK
     Route: 048
     Dates: start: 20110505, end: 20110508

REACTIONS (5)
  - PRURITUS [None]
  - CONFUSIONAL STATE [None]
  - DERMATITIS ALLERGIC [None]
  - HEARING IMPAIRED [None]
  - ERYTHEMA [None]
